FAERS Safety Report 9146467 (Version 1)
Quarter: 2013Q1

REPORT INFORMATION
  Report Type: Spontaneous
  Country: FR (occurrence: FR)
  Receive Date: 20130307
  Receipt Date: 20130307
  Transmission Date: 20140127
  Serious: Yes (Hospitalization)
  Sender: FDA-Public Use
  Company Number: FR-PFIZER INC-2013074394

PATIENT
  Age: 85 Year
  Sex: Male

DRUGS (6)
  1. TAHOR [Suspect]
     Indication: DYSLIPIDAEMIA
     Dosage: 1 DF, 1X/DAY
     Route: 048
  2. RAMIPRIL [Suspect]
     Indication: HYPERTENSION
     Dosage: 10 MG, 1X/DAY
     Route: 048
  3. REMINYL [Suspect]
     Indication: DEMENTIA ALZHEIMER^S TYPE
     Dosage: 8 MG, 1X/DAY
     Route: 048
     Dates: start: 20130111
  4. NAFTIDROFURYL [Suspect]
     Indication: PERIPHERAL ARTERIAL OCCLUSIVE DISEASE
     Dosage: 200 MG, 2X/DAY
     Route: 048
  5. ASPEGIC [Concomitant]
     Dosage: 1000 MG, 1X/DAY
     Route: 048
  6. SERESTA [Concomitant]
     Dosage: 10 MG, 1X/DAY
     Route: 048

REACTIONS (4)
  - Hepatitis acute [Recovered/Resolved]
  - Fall [Unknown]
  - Disorientation [Unknown]
  - Hypotension [Unknown]
